FAERS Safety Report 9969310 (Version 8)
Quarter: 2014Q3

REPORT INFORMATION
  Report Type: Spontaneous
  Country: IT (occurrence: IT)
  Receive Date: 20140306
  Receipt Date: 20140716
  Transmission Date: 20150326
  Serious: Yes (Hospitalization, Other)
  Sender: FDA-Public Use
  Company Number: IT-BIOGENIDEC-2014BI015677

PATIENT
  Age: 38 Year
  Sex: Male
  Weight: 90 kg

DRUGS (4)
  1. OXACARBAMAZEPINE [Concomitant]
     Indication: EPILEPSY
  2. TYSABRI [Suspect]
     Active Substance: NATALIZUMAB
     Indication: MULTIPLE SCLEROSIS
     Route: 042
     Dates: start: 20080115, end: 201210
  3. TYSABRI [Suspect]
     Active Substance: NATALIZUMAB
     Indication: MULTIPLE SCLEROSIS
     Route: 042
     Dates: start: 201212, end: 20131219
  4. TOLEP [Concomitant]
     Active Substance: OXCARBAZEPINE
     Route: 048
     Dates: start: 20080801, end: 20140213

REACTIONS (5)
  - Sepsis [Unknown]
  - Pyrexia [Unknown]
  - Progressive multifocal leukoencephalopathy [Unknown]
  - Respiratory arrest [Unknown]
  - Immune reconstitution inflammatory syndrome [Unknown]

NARRATIVE: CASE EVENT DATE: 201309
